FAERS Safety Report 14369424 (Version 2)
Quarter: 2018Q1

REPORT INFORMATION
  Report Type: Spontaneous
  Country: JP (occurrence: JP)
  Receive Date: 20180109
  Receipt Date: 20180125
  Transmission Date: 20180509
  Serious: Yes (Death, Other)
  Sender: FDA-Public Use
  Company Number: JP-CIPLA LTD.-2017JP31030

PATIENT

DRUGS (6)
  1. MESNA. [Suspect]
     Active Substance: MESNA
     Indication: DERMATOFIBROSARCOMA PROTUBERANS METASTATIC
     Dosage: UNK, 2 COURSES, CYCLICAL
     Route: 065
  2. GEMCITABINE [Suspect]
     Active Substance: GEMCITABINE\GEMCITABINE HYDROCHLORIDE
     Indication: DERMATOFIBROSARCOMA PROTUBERANS METASTATIC
     Dosage: UNK, 3 COURSES, CYCLICAL
     Route: 065
  3. DOXORUBICIN HYDROCHLORIDE. [Suspect]
     Active Substance: DOXORUBICIN HYDROCHLORIDE
     Indication: DERMATOFIBROSARCOMA PROTUBERANS METASTATIC
     Dosage: UNK, 2 COURSES, CYCLICAL
     Route: 065
  4. IFOSFAMIDE. [Suspect]
     Active Substance: IFOSFAMIDE
     Indication: DERMATOFIBROSARCOMA PROTUBERANS METASTATIC
     Dosage: UNK, 2 COURSES, CYCLICAL
     Route: 065
  5. DACARBAZINE. [Suspect]
     Active Substance: DACARBAZINE
     Indication: DERMATOFIBROSARCOMA PROTUBERANS METASTATIC
     Dosage: UNK, 2 COURSES, CYCLICAL
     Route: 065
  6. DOCETAXEL. [Suspect]
     Active Substance: DOCETAXEL
     Indication: DERMATOFIBROSARCOMA PROTUBERANS METASTATIC
     Dosage: UNK, 3 COURSES, CYCLICAL
     Route: 065

REACTIONS (3)
  - Respiratory failure [Fatal]
  - Malignant neoplasm progression [Unknown]
  - Drug resistance [Unknown]
